FAERS Safety Report 5298522-7 (Version None)
Quarter: 2007Q2

REPORT INFORMATION
  Report Type: 
  Country: None (occurrence: None)
  Receive Date: 20070409
  Receipt Date: 20070328
  Transmission Date: 20071010
  Serious: Yes (Hospitalization, Other)
  Sender: FDA-Public Use
  Company Number: 2007VX001000

PATIENT
  Age: 48 Year
  Sex: Female

DRUGS (5)
  1. INFERGEN [Suspect]
     Indication: HEPATITIS C
     Dosage: 9 UG; QD; SC
     Route: 058
     Dates: start: 20061110
  2. RIBAVIRIN [Concomitant]
  3. NEURONTIN [Concomitant]
  4. PRENATAL VITAMINS [Concomitant]
  5. VITAMIN E [Concomitant]

REACTIONS (2)
  - BLOOD COUNT ABNORMAL [None]
  - BREAST CANCER FEMALE [None]
